FAERS Safety Report 24766723 (Version 1)
Quarter: 2024Q4

REPORT INFORMATION
  Report Type: Spontaneous
  Country: DE (occurrence: DE)
  Receive Date: 20241223
  Receipt Date: 20241223
  Transmission Date: 20250114
  Serious: Yes (Other)
  Sender: TEVA
  Company Number: DE-TEVA-VS-3276800

PATIENT
  Age: 30 Year
  Sex: Male

DRUGS (1)
  1. HALOPERIDOL [Suspect]
     Active Substance: HALOPERIDOL
     Indication: Product used for unknown indication
     Dosage: HALOPERIDOL-RATIOPHARM 5 MG SOLUTION FOR INJECTION
     Route: 065
     Dates: start: 202003

REACTIONS (2)
  - Intervertebral disc protrusion [Unknown]
  - Injury [Unknown]
